FAERS Safety Report 8274681-9 (Version None)
Quarter: 2012Q2

REPORT INFORMATION
  Report Type: 
  Country: None (occurrence: None)
  Receive Date: 20120411
  Receipt Date: 20120301
  Transmission Date: 20120825
  Serious: Yes (Other)
  Sender: FDA-Public Use
  Company Number: JP-GLAXOSMITHKLINE-B0794681A

PATIENT
  Age: 68 Year
  Sex: Female

DRUGS (2)
  1. HYCAMTIN [Suspect]
     Indication: OVARIAN CANCER
     Dosage: 1.5MGM2 PER DAY
     Route: 042
     Dates: start: 20110905, end: 20111217
  2. GEMZAR [Suspect]
     Indication: OVARIAN CANCER
     Route: 065

REACTIONS (4)
  - NEUTROPHIL COUNT DECREASED [None]
  - WHITE BLOOD CELL COUNT DECREASED [None]
  - ANAEMIA [None]
  - DISEASE PROGRESSION [None]
